FAERS Safety Report 6056783-0 (Version None)
Quarter: 2009Q1

REPORT INFORMATION
  Report Type: 
  Country: None (occurrence: None)
  Receive Date: 20090126
  Receipt Date: 20090126
  Transmission Date: 20090719
  Serious: Yes (Hospitalization)
  Sender: FDA-Public Use
  Company Number: None

PATIENT
  Age: 66 Year
  Sex: Female
  Weight: 88.4514 kg

DRUGS (1)
  1. FUROSEMIDE 80 MG UNKNOWN [Suspect]
     Indication: CARDIAC FAILURE CONGESTIVE
     Dosage: 80 MG BID
     Dates: start: 20020901, end: 20020918

REACTIONS (2)
  - GASTROINTESTINAL DISORDER [None]
  - TREATMENT FAILURE [None]
